FAERS Safety Report 5723404-3 (Version None)
Quarter: 2008Q2

REPORT INFORMATION
  Report Type: 
  Country: None (occurrence: None)
  Receive Date: 20080429
  Receipt Date: 20070627
  Transmission Date: 20081010
  Serious: Yes (Other)
  Sender: FDA-Public Use
  Company Number: NARC20070001

PATIENT
  Sex: Male

DRUGS (1)
  1. NARCAN [Suspect]

REACTIONS (1)
  - CONVULSION [None]
